FAERS Safety Report 9441169 (Version 4)
Quarter: 2013Q3

REPORT INFORMATION
  Report Type: Spontaneous
  Country: IT (occurrence: None)
  Receive Date: 20130801
  Receipt Date: 20130927
  Transmission Date: 20140515
  Serious: Yes (Hospitalization)
  Sender: FDA-Public Use
  Company Number: SYM-2013-07707

PATIENT
  Age: 47 Year
  Sex: Female

DRUGS (7)
  1. XENAZINA [Suspect]
     Indication: ADJUSTMENT DISORDER
     Route: 048
     Dates: start: 20130509, end: 20130610
  2. XENAZINA [Suspect]
     Indication: OFF LABEL USE
     Route: 048
     Dates: start: 20130509, end: 20130610
  3. FLURAZEPAM [Suspect]
     Indication: INTENTIONAL OVERDOSE
  4. FLURAZEPAM [Suspect]
     Indication: DRUG ABUSE
  5. CYMBALTA [Suspect]
     Indication: ADJUSTMENT DISORDER
     Route: 048
     Dates: start: 20130509, end: 20130610
  6. SEROQUEL [Suspect]
     Indication: INTENTIONAL OVERDOSE
     Route: 048
  7. SEROQUEL [Suspect]
     Indication: DRUG ABUSE
     Route: 048

REACTIONS (11)
  - Off label use [None]
  - Bradykinesia [None]
  - Bradyphrenia [None]
  - Self-injurious ideation [None]
  - Sopor [None]
  - Hypotension [None]
  - Speech disorder [None]
  - Urinary incontinence [None]
  - Balance disorder [None]
  - Drug abuse [None]
  - Intentional overdose [None]
